FAERS Safety Report 9028507 (Version 2)
Quarter: 2013Q4

REPORT INFORMATION
  Report Type: Report from Study
  Country: FR (occurrence: FR)
  Receive Date: 20130124
  Receipt Date: 20131129
  Transmission Date: 20140711
  Serious: Yes (Hospitalization)
  Sender: FDA-Public Use
  Company Number: PHHO2013FR001413

PATIENT
  Sex: 0

DRUGS (3)
  1. RAD 666 / RAD 001A [Suspect]
     Indication: RENAL TRANSPLANT
     Dosage: 4 MG, QD
     Route: 048
     Dates: start: 20120911
  2. CELLCEPT [Suspect]
     Indication: RENAL TRANSPLANT
     Dosage: 3 G, QD
     Route: 048
     Dates: start: 20120907
  3. SOLUPRED [Suspect]
     Indication: RENAL TRANSPLANT
     Dosage: 60 MG, QD
     Route: 002
     Dates: start: 20120907

REACTIONS (1)
  - Pancreatitis acute [Recovered/Resolved]
